FAERS Safety Report 4709752-4 (Version None)
Quarter: 2005Q2

REPORT INFORMATION
  Report Type: 
  Country: None (occurrence: None)
  Receive Date: 20050629
  Receipt Date: 20050531
  Transmission Date: 20051028
  Serious: No
  Sender: FDA-Public Use
  Company Number: 05P-163-0301906-00

PATIENT
  Sex: Female

DRUGS (3)
  1. HUMIRA [Suspect]
     Indication: RHEUMATOID ARTHRITIS
     Dosage: SEE IMAGE
     Route: 058
     Dates: start: 20050401, end: 20050501
  2. HUMIRA [Suspect]
     Indication: RHEUMATOID ARTHRITIS
     Dosage: SEE IMAGE
     Route: 058
     Dates: start: 20050519
  3. . [Concomitant]

REACTIONS (7)
  - HEADACHE [None]
  - MENORRHAGIA [None]
  - NAIL AVULSION [None]
  - NECK PAIN [None]
  - PARANASAL SINUS HYPERSECRETION [None]
  - SINUSITIS [None]
  - STAPHYLOCOCCAL INFECTION [None]
